FAERS Safety Report 17131968 (Version 2)
Quarter: 2020Q1

REPORT INFORMATION
  Report Type: Spontaneous
  Country: US (occurrence: US)
  Receive Date: 20191209
  Receipt Date: 20200110
  Transmission Date: 20200409
  Serious: No
  Sender: FDA-Public Use
  Company Number: US-UCBSA-2016043598

PATIENT
  Age: 27 Year
  Sex: Male

DRUGS (9)
  1. LORAZEPAM. [Concomitant]
     Active Substance: LORAZEPAM
     Indication: PRODUCT USED FOR UNKNOWN INDICATION
     Dosage: AS NEEDED (PRN)
  2. CLONAZEPAM. [Concomitant]
     Active Substance: CLONAZEPAM
     Indication: PRODUCT USED FOR UNKNOWN INDICATION
     Dosage: UNK
  3. ONFI [Suspect]
     Active Substance: CLOBAZAM
     Indication: SIMPLE PARTIAL SEIZURES
     Dosage: 40 MG DAILY
     Dates: start: 201603
  4. TEMODAR [Suspect]
     Active Substance: TEMOZOLOMIDE
     Indication: CHEMOTHERAPY
  5. VIMPAT [Concomitant]
     Active Substance: LACOSAMIDE
     Indication: PRODUCT USED FOR UNKNOWN INDICATION
  6. ZONEGRAN [Concomitant]
     Active Substance: ZONISAMIDE
     Indication: PRODUCT USED FOR UNKNOWN INDICATION
     Dosage: UNK
  7. ONFI [Suspect]
     Active Substance: CLOBAZAM
     Indication: PARTIAL SEIZURES
     Dosage: 10 MG, ONCE DAILY (QD) IN MORNING
     Dates: start: 201603, end: 201603
  8. DILANTIN [Suspect]
     Active Substance: PHENYTOIN
     Indication: PRODUCT USED FOR UNKNOWN INDICATION
     Dosage: UNK
  9. KEPPRA [Concomitant]
     Active Substance: LEVETIRACETAM
     Indication: PRODUCT USED FOR UNKNOWN INDICATION
     Dosage: UNK

REACTIONS (4)
  - Fall [Unknown]
  - Toxicity to various agents [Recovering/Resolving]
  - Dysarthria [Unknown]
  - Somnolence [Unknown]
